FAERS Safety Report 21612219 (Version 3)
Quarter: 2023Q1

REPORT INFORMATION
  Report Type: Spontaneous
  Country: US (occurrence: US)
  Receive Date: 20221118
  Receipt Date: 20230130
  Transmission Date: 20230417
  Serious: No
  Sender: FDA-Public Use
  Company Number: US-BRISTOL-MYERS SQUIBB COMPANY-2022-135971

PATIENT
  Age: 73 Year
  Sex: Female

DRUGS (1)
  1. REVLIMID [Suspect]
     Active Substance: LENALIDOMIDE
     Indication: Product used for unknown indication
     Dosage: FREQUENCY- DAILY.
     Route: 048
     Dates: start: 202111

REACTIONS (7)
  - Neck pain [Unknown]
  - Gingival pain [Unknown]
  - Diarrhoea [Unknown]
  - Muscle spasms [Unknown]
  - Constipation [Unknown]
  - Decreased appetite [Unknown]
  - Taste disorder [Unknown]

NARRATIVE: CASE EVENT DATE: 20221209
